FAERS Safety Report 23092205 (Version 1)
Quarter: 2023Q4

REPORT INFORMATION
  Report Type: Spontaneous
  Country: FR (occurrence: FR)
  Receive Date: 20231021
  Receipt Date: 20231021
  Transmission Date: 20240110
  Serious: Yes (Hospitalization, Other)
  Sender: FDA-Public Use
  Company Number: FR-AFSSAPS-CF20180078

PATIENT
  Age: 42 Year
  Sex: Male
  Weight: 92 kg

DRUGS (15)
  1. ASPIRIN [Suspect]
     Active Substance: ASPIRIN
     Dosage: DOSE DESCRIPTION : UNK UNK,UNK
     Route: 048
     Dates: end: 20170608
  2. TRIMEPRAZINE [Suspect]
     Active Substance: TRIMEPRAZINE
     Dosage: DOSE DESCRIPTION : UNK UNK,UNK
     Route: 048
     Dates: end: 20170608
  3. PROMETHAZINE [Suspect]
     Active Substance: PROMETHAZINE HYDROCHLORIDE
     Dosage: DOSE DESCRIPTION : UNK UNK,UNK
     Route: 048
     Dates: start: 20170608, end: 20170608
  4. ALPRAZOLAM [Suspect]
     Active Substance: ALPRAZOLAM
     Dosage: DOSE DESCRIPTION : UNK UNK,UNK
     Route: 048
     Dates: start: 20170608, end: 20170608
  5. ZOPICLONE [Suspect]
     Active Substance: ZOPICLONE
     Dosage: DOSE DESCRIPTION : UNK UNK,UNK
     Route: 065
     Dates: start: 20170608, end: 20170608
  6. ARIPIPRAZOLE [Suspect]
     Active Substance: ARIPIPRAZOLE
     Indication: Schizophrenia
     Dosage: DOSE DESCRIPTION : UNK UNK,UNK
     Route: 048
     Dates: end: 20170608
  7. VENLAFAXINE HYDROCHLORIDE [Suspect]
     Active Substance: VENLAFAXINE HYDROCHLORIDE
     Indication: Depression
     Dosage: DOSE DESCRIPTION : UNK UNK,UNK
     Route: 048
     Dates: end: 20170608
  8. TRIHEXYPHENIDYL HYDROCHLORIDE [Suspect]
     Active Substance: TRIHEXYPHENIDYL HYDROCHLORIDE
     Dosage: DOSE DESCRIPTION : UNK UNK,UNK
     Route: 065
     Dates: end: 20170608
  9. ENOXAPARIN SODIUM [Suspect]
     Active Substance: ENOXAPARIN SODIUM
     Indication: Venous thrombosis
     Dosage: DOSE DESCRIPTION : 2 DF,QD
     Route: 058
     Dates: start: 20170608, end: 20170615
  10. CLORAZEPATE DIPOTASSIUM [Suspect]
     Active Substance: CLORAZEPATE DIPOTASSIUM
     Dosage: DOSE DESCRIPTION : UNK UNK,UNK
     Route: 048
  11. LEFLUNOMIDE [Suspect]
     Active Substance: LEFLUNOMIDE
     Indication: Palindromic rheumatism
     Dosage: DOSE DESCRIPTION : UNK UNK,UNK
     Route: 048
     Dates: end: 20170608
  12. OXAZEPAM [Suspect]
     Active Substance: OXAZEPAM
     Dosage: DOSE DESCRIPTION : UNK UNK,UNK
     Route: 048
  13. AMOXICILLIN\CLAVULANIC ACID [Suspect]
     Active Substance: AMOXICILLIN\CLAVULANIC ACID
     Indication: Pneumonia
     Dosage: DOSE DESCRIPTION : UNK UNK,UNK
     Route: 042
     Dates: start: 20170608, end: 20170615
  14. CISATRACURIUM BESYLATE [Suspect]
     Active Substance: CISATRACURIUM BESYLATE
     Dosage: DOSE DESCRIPTION : UNK UNK,UNK
     Route: 042
     Dates: start: 20170608, end: 20170610
  15. LOXAPINE SUCCINATE [Suspect]
     Active Substance: LOXAPINE SUCCINATE
     Indication: Schizophrenia
     Dosage: DOSE DESCRIPTION : UNK UNK,UNK
     Route: 048
     Dates: end: 20170608

REACTIONS (4)
  - Blood triglycerides increased [Recovering/Resolving]
  - Hepatitis acute [Recovered/Resolved]
  - Blood cholesterol increased [Recovered/Resolved]
  - Lipase increased [Recovered/Resolved]

NARRATIVE: CASE EVENT DATE: 20170616
